FAERS Safety Report 18395973 (Version 1)
Quarter: 2020Q4

REPORT INFORMATION
  Report Type: Spontaneous
  Country: US (occurrence: US)
  Receive Date: 20201018
  Receipt Date: 20201018
  Transmission Date: 20210114
  Serious: Yes (Other)
  Sender: FDA-Public Use
  Company Number: US-AMGEN-USASP2020166726

PATIENT

DRUGS (1)
  1. OTEZLA [Suspect]
     Active Substance: APREMILAST
     Indication: BEHCET^S SYNDROME
     Dosage: 30 MILLIGRAM (UNSURE IF TWICE A DAY OR ONCE A DAY)
     Route: 048

REACTIONS (2)
  - Therapeutic product effect incomplete [Unknown]
  - Behcet^s syndrome [Not Recovered/Not Resolved]
